FAERS Safety Report 5715242-2 (Version None)
Quarter: 2008Q2

REPORT INFORMATION
  Report Type: 
  Country: None (occurrence: None)
  Receive Date: 20080422
  Receipt Date: 20080409
  Transmission Date: 20081010
  Serious: Yes (Hospitalization)
  Sender: FDA-Public Use
  Company Number: US023211

PATIENT
  Age: 73 Year
  Sex: Female
  Weight: 70.3075 kg

DRUGS (8)
  1. PROVIGIL [Suspect]
     Indication: ASTHENIA
     Dosage: 100 MG QAM ORAL
     Route: 048
     Dates: start: 20020101, end: 20030101
  2. PROVIGIL [Suspect]
     Indication: MULTIPLE SCLEROSIS
     Dosage: 100 MG QAM ORAL
     Route: 048
     Dates: start: 20020101, end: 20030101
  3. PROVIGIL [Suspect]
     Indication: ASTHENIA
     Dosage: 200 MG BID ORAL
     Route: 048
     Dates: start: 20030101
  4. PROVIGIL [Suspect]
     Indication: MULTIPLE SCLEROSIS
     Dosage: 200 MG BID ORAL
     Route: 048
     Dates: start: 20030101
  5. LEXAPRO [Concomitant]
  6. BACLOFEN [Concomitant]
  7. MIRTAZAPINE [Concomitant]
  8. AVONEX [Concomitant]

REACTIONS (16)
  - ASTHENIA [None]
  - BLISTER [None]
  - BRONCHITIS [None]
  - DEHYDRATION [None]
  - DIZZINESS [None]
  - DRY MOUTH [None]
  - DYSPHONIA [None]
  - DYSPNOEA [None]
  - HALLUCINATION [None]
  - KIDNEY INFECTION [None]
  - LIP DRY [None]
  - NASAL CONGESTION [None]
  - NAUSEA [None]
  - PHARYNGEAL OEDEMA [None]
  - PRODUCTIVE COUGH [None]
  - RASH [None]
